FAERS Safety Report 18187222 (Version 1)
Quarter: 2020Q3

REPORT INFORMATION
  Report Type: Spontaneous
  Country: FR (occurrence: FR)
  Receive Date: 20200824
  Receipt Date: 20200824
  Transmission Date: 20201103
  Serious: Yes (Hospitalization)
  Sender: FDA-Public Use
  Company Number: NVSC2020FR230417

PATIENT
  Age: 75 Year
  Sex: Female
  Weight: 81 kg

DRUGS (5)
  1. PRAZEPAM [Suspect]
     Active Substance: PRAZEPAM
     Indication: DEPRESSION
     Dosage: UNK
     Route: 048
  2. GABAPENTIN. [Suspect]
     Active Substance: GABAPENTIN
     Indication: FIBROMYALGIA
     Dosage: UNK
     Route: 048
  3. OXYNORM [Suspect]
     Active Substance: OXYCODONE HYDROCHLORIDE
     Indication: PAIN
     Dosage: UNK
     Route: 048
  4. CLOMIPRAMINE [Suspect]
     Active Substance: CLOMIPRAMINE
     Indication: DEPRESSION
     Dosage: UNK
     Route: 048
  5. OXYCONTIN [Suspect]
     Active Substance: OXYCODONE HYDROCHLORIDE
     Indication: PAIN
     Dosage: UNK
     Route: 048

REACTIONS (4)
  - Altered state of consciousness [Recovering/Resolving]
  - Dyspnoea [Recovering/Resolving]
  - Aphasia [Recovering/Resolving]
  - Dysarthria [Recovering/Resolving]

NARRATIVE: CASE EVENT DATE: 20200625
